FAERS Safety Report 24585187 (Version 2)
Quarter: 2025Q1

REPORT INFORMATION
  Report Type: Spontaneous
  Country: GB (occurrence: GB)
  Receive Date: 20241106
  Receipt Date: 20250129
  Transmission Date: 20250409
  Serious: Yes (Hospitalization, Other)
  Sender: SANDOZ
  Company Number: GB-SA-2017SA010664

PATIENT
  Age: 55 Year
  Sex: Male

DRUGS (55)
  1. BOCOCIZUMAB [Suspect]
     Active Substance: BOCOCIZUMAB
     Route: 065
     Dates: start: 20150908, end: 20161101
  2. BOCOCIZUMAB [Suspect]
     Active Substance: BOCOCIZUMAB
     Indication: Cardiovascular disorder
     Dosage: 150 MG, BIW (FREQUENCY- EVERY 2 WEEKS)
     Route: 058
     Dates: start: 20150908, end: 20161101
  3. BOCOCIZUMAB [Suspect]
     Active Substance: BOCOCIZUMAB
     Indication: Cardiovascular disorder
     Route: 058
  4. CARVEDILOL [Suspect]
     Active Substance: CARVEDILOL
     Indication: Angina pectoris
     Dosage: 25 MG, QD
     Route: 065
     Dates: start: 20110616
  5. CARVEDILOL [Suspect]
     Active Substance: CARVEDILOL
     Dosage: 25 MG, BID
     Route: 065
     Dates: start: 20110616
  6. CARVEDILOL [Suspect]
     Active Substance: CARVEDILOL
     Dosage: 50 MG, QD
     Route: 065
     Dates: start: 20110616
  7. FUROSEMIDE [Suspect]
     Active Substance: FUROSEMIDE
     Indication: Left ventricular dysfunction
     Dosage: 40 MG, QD
     Route: 065
     Dates: start: 20160402
  8. FUROSEMIDE [Suspect]
     Active Substance: FUROSEMIDE
     Indication: Lung disorder
  9. FUROSEMIDE [Suspect]
     Active Substance: FUROSEMIDE
     Indication: Pleural effusion
  10. FUROSEMIDE [Suspect]
     Active Substance: FUROSEMIDE
     Indication: Pulmonary oedema
  11. ISOSORBIDE MONONITRATE [Suspect]
     Active Substance: ISOSORBIDE MONONITRATE
     Indication: Angina pectoris
     Dosage: ORAL FORMULATION: DURULE
     Route: 048
     Dates: start: 20160205
  12. ISOSORBIDE MONONITRATE [Suspect]
     Active Substance: ISOSORBIDE MONONITRATE
     Indication: Angina pectoris
  13. IVABRADINE [Suspect]
     Active Substance: IVABRADINE
     Indication: Angina pectoris
     Dosage: 5 MG, QD
     Route: 065
     Dates: start: 20150211
  14. IVABRADINE [Suspect]
     Active Substance: IVABRADINE
     Route: 065
  15. OMEPRAZOLE [Suspect]
     Active Substance: OMEPRAZOLE
     Indication: Dyspepsia
     Route: 048
     Dates: start: 20140116
  16. QUETIAPINE FUMARATE [Suspect]
     Active Substance: QUETIAPINE FUMARATE
     Route: 048
     Dates: start: 20150826
  17. QUETIAPINE FUMARATE [Suspect]
     Active Substance: QUETIAPINE FUMARATE
     Indication: Depression
     Route: 065
     Dates: start: 20150826
  18. RAMIPRIL [Suspect]
     Active Substance: RAMIPRIL
     Dosage: 1 MG, QD
     Route: 048
     Dates: start: 20130813, end: 20160629
  19. RAMIPRIL [Suspect]
     Active Substance: RAMIPRIL
     Indication: Cardiac failure
     Dosage: 1.25 MG, QD
     Route: 048
     Dates: start: 20130813, end: 20160629
  20. ASPIRIN [Concomitant]
     Active Substance: ASPIRIN
     Indication: Cardiovascular disorder
     Route: 065
     Dates: start: 20130708
  21. ASPIRIN [Concomitant]
     Active Substance: ASPIRIN
     Indication: Cardiovascular disorder
  22. ATORVASTATIN [Concomitant]
     Active Substance: ATORVASTATIN
     Indication: Cardiovascular disorder
     Route: 065
     Dates: start: 20130708
  23. ATORVASTATIN [Concomitant]
     Active Substance: ATORVASTATIN
     Indication: Cardiovascular disorder
  24. CODEINE PHOSPHATE [Concomitant]
     Active Substance: CODEINE PHOSPHATE
     Indication: Product used for unknown indication
     Route: 065
  25. CODEINE PHOSPHATE [Concomitant]
     Active Substance: CODEINE PHOSPHATE
     Route: 065
  26. CODEINE PHOSPHATE [Concomitant]
     Active Substance: CODEINE PHOSPHATE
     Route: 065
  27. CODEINE PHOSPHATE [Concomitant]
     Active Substance: CODEINE PHOSPHATE
     Indication: Product used for unknown indication
     Route: 065
  28. ENTRESTO [Concomitant]
     Active Substance: SACUBITRIL\VALSARTAN
     Indication: Left ventricular dysfunction
     Route: 048
     Dates: start: 20160701
  29. ENTRESTO [Concomitant]
     Active Substance: SACUBITRIL\VALSARTAN
     Indication: Left ventricular dysfunction
     Route: 065
     Dates: start: 20160601
  30. ENTRESTO [Concomitant]
     Active Substance: SACUBITRIL\VALSARTAN
     Indication: Ventricular dysfunction
     Route: 065
     Dates: start: 20160701
  31. ENTRESTO [Concomitant]
     Active Substance: SACUBITRIL\VALSARTAN
     Indication: Left ventricular dysfunction
  32. ENTRESTO [Concomitant]
     Active Substance: SACUBITRIL\VALSARTAN
     Indication: Ventricular dysfunction
  33. FOLIC ACID [Concomitant]
     Active Substance: FOLIC ACID
     Indication: Anaemia
     Route: 065
     Dates: start: 20131211
  34. FOLIC ACID [Concomitant]
     Active Substance: FOLIC ACID
     Indication: Anaemia
  35. NITROGLYCERIN [Concomitant]
     Active Substance: NITROGLYCERIN
     Indication: Pain
     Route: 065
     Dates: start: 20130902
  36. NITROGLYCERIN [Concomitant]
     Active Substance: NITROGLYCERIN
     Indication: Cardiovascular disorder
  37. NITROGLYCERIN [Concomitant]
     Active Substance: NITROGLYCERIN
     Indication: Pain
  38. NITROGLYCERIN [Concomitant]
     Active Substance: NITROGLYCERIN
     Indication: Pain
  39. ACETAMINOPHEN\CODEINE PHOSPHATE [Concomitant]
     Active Substance: ACETAMINOPHEN\CODEINE PHOSPHATE
     Indication: Pain in extremity
     Route: 065
     Dates: start: 20110616
  40. ACETAMINOPHEN\CODEINE PHOSPHATE [Concomitant]
     Active Substance: ACETAMINOPHEN\CODEINE PHOSPHATE
     Indication: Pain in extremity
     Route: 065
     Dates: start: 20110616
  41. ACETAMINOPHEN\CODEINE PHOSPHATE [Concomitant]
     Active Substance: ACETAMINOPHEN\CODEINE PHOSPHATE
     Indication: Pain in extremity
     Route: 065
     Dates: start: 20110616
  42. ACETAMINOPHEN\CODEINE PHOSPHATE [Concomitant]
     Active Substance: ACETAMINOPHEN\CODEINE PHOSPHATE
     Route: 065
     Dates: start: 20110616
  43. ACETAMINOPHEN\CODEINE PHOSPHATE [Concomitant]
     Active Substance: ACETAMINOPHEN\CODEINE PHOSPHATE
     Indication: Pain in extremity
     Route: 065
     Dates: start: 20110616
  44. BETAMETHASONE DIPROPIONATE\CLOTRIMAZOLE [Concomitant]
     Active Substance: BETAMETHASONE DIPROPIONATE\CLOTRIMAZOLE
     Indication: Psoriasis
     Route: 065
     Dates: start: 20150626
  45. BETAMETHASONE DIPROPIONATE\CLOTRIMAZOLE [Concomitant]
     Active Substance: BETAMETHASONE DIPROPIONATE\CLOTRIMAZOLE
     Indication: Psoriasis
  46. METHOTREXATE [Concomitant]
     Active Substance: METHOTREXATE
     Indication: Psoriasis
     Route: 065
     Dates: start: 20150727
  47. METHOTREXATE [Concomitant]
     Active Substance: METHOTREXATE
     Indication: Psoriasis
  48. OMEPRAZOLE [Concomitant]
     Active Substance: OMEPRAZOLE
     Indication: Dyspepsia
     Route: 065
     Dates: start: 20140116
  49. ACETAMINOPHEN [Concomitant]
     Active Substance: ACETAMINOPHEN
     Indication: Pain in extremity
     Route: 065
     Dates: start: 20110616
  50. ACETAMINOPHEN [Concomitant]
     Active Substance: ACETAMINOPHEN
     Indication: Pain in extremity
     Route: 065
     Dates: start: 20160616
  51. ACETAMINOPHEN [Concomitant]
     Active Substance: ACETAMINOPHEN
     Indication: Pain in extremity
     Route: 065
     Dates: start: 20110616
  52. ACETAMINOPHEN [Concomitant]
     Active Substance: ACETAMINOPHEN
     Indication: Pain in extremity
  53. SERTRALINE HYDROCHLORIDE [Concomitant]
     Active Substance: SERTRALINE HYDROCHLORIDE
     Route: 065
     Dates: start: 20160701
  54. SERTRALINE HYDROCHLORIDE [Concomitant]
     Active Substance: SERTRALINE HYDROCHLORIDE
     Indication: Depression
     Route: 065
     Dates: start: 20110816
  55. SERTRALINE HYDROCHLORIDE [Concomitant]
     Active Substance: SERTRALINE HYDROCHLORIDE
     Route: 065
     Dates: start: 20110616

REACTIONS (14)
  - Cardiac failure [Unknown]
  - Pulmonary oedema [Unknown]
  - Left ventricular dysfunction [Unknown]
  - Hypotension [Recovered/Resolved]
  - Psoriasis [Unknown]
  - Contusion [Recovered/Resolved]
  - Presyncope [Unknown]
  - Fluid retention [Not Recovered/Not Resolved]
  - Anaemia [Unknown]
  - Angina pectoris [Unknown]
  - Oedema peripheral [Not Recovered/Not Resolved]
  - Drug interaction [Recovered/Resolved]
  - Angina pectoris [Unknown]
  - Contusion [Recovered/Resolved]

NARRATIVE: CASE EVENT DATE: 20130919
